FAERS Safety Report 5358954-5 (Version None)
Quarter: 2007Q2

REPORT INFORMATION
  Report Type: 
  Country: None (occurrence: None)
  Receive Date: 20070615
  Receipt Date: 20070605
  Transmission Date: 20071010
  Serious: Yes (Life-Threatening, Other)
  Sender: FDA-Public Use
  Company Number: US-NOVOPROD-264236

PATIENT
  Sex: Male

DRUGS (6)
  1. NOVOLOG [Suspect]
     Indication: DIABETES MELLITUS INSULIN-DEPENDENT
     Dosage: UNK, QD
     Route: 058
     Dates: start: 20050501
  2. LANTUS [Suspect]
     Indication: DIABETES MELLITUS INSULIN-DEPENDENT
     Dosage: 18 IU, QD
     Route: 058
  3. MORPHINE [Concomitant]
     Indication: NECK INJURY
     Route: 048
  4. VICODIN [Concomitant]
     Indication: NECK INJURY
     Route: 048
  5. LIPITOR [Concomitant]
     Indication: BLOOD CHOLESTEROL INCREASED
     Route: 048
  6. SYNTHROID [Concomitant]
     Indication: BASEDOW'S DISEASE
     Route: 048

REACTIONS (5)
  - HYPOGLYCAEMIC SEIZURE [None]
  - LOSS OF CONSCIOUSNESS [None]
  - RIB FRACTURE [None]
  - SPINAL FRACTURE [None]
  - TOOTH FRACTURE [None]
